FAERS Safety Report 11830392 (Version 3)
Quarter: 2015Q4

REPORT INFORMATION
  Report Type: Spontaneous
  Country: US (occurrence: US)
  Receive Date: 20151214
  Receipt Date: 20151214
  Transmission Date: 20160305
  Serious: Yes (Disabling, Other)
  Sender: FDA-Public Use
  Company Number: US-JNJFOC-20151107760

PATIENT
  Age: 47 Year
  Sex: Female
  Weight: 57.61 kg

DRUGS (4)
  1. LEVAQUIN [Suspect]
     Active Substance: LEVOFLOXACIN
     Indication: SINUS DISORDER
     Route: 065
     Dates: start: 20030707, end: 20030711
  2. LEVAQUIN [Suspect]
     Active Substance: LEVOFLOXACIN
     Indication: BRONCHITIS
     Route: 065
     Dates: start: 20030707, end: 20030711
  3. DURATUSS [Concomitant]
     Active Substance: GUAIFENESIN\PSEUDOEPHEDRINE HYDROCHLORIDE
     Route: 065
     Dates: start: 20030708, end: 20030712
  4. IBUPROFEN. [Concomitant]
     Active Substance: IBUPROFEN
     Route: 065
     Dates: start: 20030706, end: 20030712

REACTIONS (14)
  - Presyncope [Unknown]
  - Colitis [Unknown]
  - Heart rate increased [Unknown]
  - Anxiety [Unknown]
  - Dizziness [Unknown]
  - Fatigue [Unknown]
  - Palpitations [Unknown]
  - Paraesthesia [Unknown]
  - Pain [Unknown]
  - Nightmare [Unknown]
  - Confusional state [Unknown]
  - Arthralgia [Unknown]
  - Hyperhidrosis [Unknown]
  - Insomnia [Unknown]

NARRATIVE: CASE EVENT DATE: 20030707
